FAERS Safety Report 9459915 (Version 2)
Quarter: 2014Q1

REPORT INFORMATION
  Report Type: Spontaneous
  Country: IT (occurrence: None)
  Receive Date: 20130809
  Receipt Date: 20140220
  Transmission Date: 20141002
  Serious: Yes (Hospitalization)
  Sender: FDA-Public Use
  Company Number: 2013MPI00450

PATIENT
  Age: 65 Year
  Sex: Male
  Weight: 87 kg

DRUGS (2)
  1. ADCETRIS [Suspect]
     Indication: HODGKIN^S DISEASE
     Dosage: 155 MG, Q21D, INTRAVENOUS
     Route: 042
     Dates: start: 20130422
  2. LANSOX (LANSOPRAZOLE) [Concomitant]

REACTIONS (2)
  - Pancreatitis acute [None]
  - Neutropenia [None]
